FAERS Safety Report 6193980-8 (Version None)
Quarter: 2009Q2

REPORT INFORMATION
  Report Type: 
  Country: None (occurrence: None)
  Receive Date: 20090518
  Receipt Date: 20090511
  Transmission Date: 20091009
  Serious: Yes (Other)
  Sender: FDA-Public Use
  Company Number: PHHY2009CA18308

PATIENT
  Sex: Female

DRUGS (1)
  1. SANDOSTATIN LAR [Suspect]
     Indication: CARCINOID SYNDROME
     Dosage: 40 MG, QW4
     Route: 030
     Dates: start: 20071222

REACTIONS (2)
  - GASTROINTESTINAL DISORDER [None]
  - NEOPLASM PROGRESSION [None]
